FAERS Safety Report 14794329 (Version 2)
Quarter: 2018Q2

REPORT INFORMATION
  Report Type: Spontaneous
  Country: FR (occurrence: FR)
  Receive Date: 20180423
  Receipt Date: 20180518
  Transmission Date: 20180711
  Serious: Yes (Other)
  Sender: FDA-Public Use
  Company Number: FR-MYLANLABS-2018M1025548

PATIENT
  Age: 32 Year
  Sex: Male

DRUGS (4)
  1. VINCRISTINE [Suspect]
     Active Substance: VINCRISTINE
     Indication: OLIGODENDROGLIOMA
     Dosage: 1.4 MG/M2 ON DAY 8 AND 29 (CUMULATIVE DOSE;6MG)
  2. TEMOZOLOMIDE. [Suspect]
     Active Substance: TEMOZOLOMIDE
     Indication: OLIGODENDROGLIOMA
     Dosage: 200 MG/M2, QD (FOR 5 DAYS)
  3. CCNU [Suspect]
     Active Substance: LOMUSTINE
     Indication: OLIGODENDROGLIOMA
     Dosage: 130 MG/M2, UNK (ON DAY 1)
  4. PROCARBAZINE [Suspect]
     Active Substance: PROCARBAZINE
     Indication: OLIGODENDROGLIOMA
     Dosage: 75 MG/M2, UNK (ON 8-21)

REACTIONS (2)
  - Hereditary motor and sensory neuropathy [Recovering/Resolving]
  - Condition aggravated [Recovering/Resolving]
